FAERS Safety Report 9859675 (Version 2)
Quarter: 2014Q1

REPORT INFORMATION
  Report Type: Spontaneous
  Country: DE (occurrence: GB)
  Receive Date: 20140131
  Receipt Date: 20140131
  Transmission Date: 20141002
  Serious: Yes (Hospitalization, Other)
  Sender: FDA-Public Use
  Company Number: GB-PFIZER INC-2014024358

PATIENT
  Age: 58 Year
  Sex: Male

DRUGS (4)
  1. SULFASALAZINE [Suspect]
     Indication: COLITIS ULCERATIVE
     Dosage: 1 G, 3X/DAY
     Route: 048
     Dates: start: 197401, end: 197404
  2. SULFASALAZINE [Suspect]
     Dosage: 0.5 G, 3X/DAY
     Route: 048
     Dates: start: 197404, end: 19740513
  3. SULFASALAZINE [Suspect]
     Dosage: UNK
     Dates: start: 197409, end: 197409
  4. PREDSOL [Concomitant]
     Indication: COLITIS ULCERATIVE
     Dosage: ! DF/ 1XDAY AT NIGHTLY (ENEMA)
     Route: 054

REACTIONS (2)
  - Pulmonary eosinophilia [Recovering/Resolving]
  - Pulmonary fibrosis [Recovering/Resolving]
